FAERS Safety Report 24867243 (Version 1)
Quarter: 2025Q1

REPORT INFORMATION
  Report Type: Spontaneous
  Country: US (occurrence: None)
  Receive Date: 20250117
  Receipt Date: 20250117
  Transmission Date: 20250409
  Serious: Yes (Death)
  Sender: FDA-CTU
  Company Number: None

PATIENT
  Age: 74 Year
  Sex: Male

DRUGS (2)
  1. COLLAGENASE SANTYL [Suspect]
     Active Substance: COLLAGENASE CLOSTRIDIUM HISTOLYTICUM
     Indication: Type 2 diabetes mellitus
     Dosage: 31  UNKNOWN -  UNK  DAILY TOPICAL ?
     Route: 061
     Dates: start: 20241022, end: 20241124
  2. COLLAGENASE SANTYL [Suspect]
     Active Substance: COLLAGENASE CLOSTRIDIUM HISTOLYTICUM
     Indication: Skin ulcer

REACTIONS (1)
  - Death [None]

NARRATIVE: CASE EVENT DATE: 20241124
